FAERS Safety Report 5175267-5 (Version None)
Quarter: 2006Q4

REPORT INFORMATION
  Report Type: 
  Country: None (occurrence: None)
  Receive Date: 20061211
  Receipt Date: 20061211
  Transmission Date: 20070319
  Serious: Yes (Hospitalization)
  Sender: FDA-Public Use
  Company Number: None

PATIENT
  Age: 45 Year
  Sex: Female
  Weight: 59.3 kg

DRUGS (1)
  1. CETUXIMAB [Suspect]
     Indication: BREAST CANCER STAGE IV
     Dosage: 400MG/M2   X1  (INITIAL DOSE)  IV
     Route: 042
     Dates: start: 20061207

REACTIONS (1)
  - INFUSION RELATED REACTION [None]
